FAERS Safety Report 8633639 (Version 2)
Quarter: 2012Q4

REPORT INFORMATION
  Report Type: Spontaneous
  Country: LU (occurrence: None)
  Receive Date: 20120613
  Receipt Date: 20120820
  Transmission Date: 20130627
  Serious: Yes (Hospitalization, Disabling)
  Sender: FDA-Public Use
  Company Number: 2012-2468

PATIENT
  Age: 40 Year
  Sex: Female
  Weight: 50 kg

DRUGS (2)
  1. BOTULINUM TOXIN TYPE A [Suspect]
     Indication: SKIN WRINKLING
     Dosage: 60 UNITS (60 UNITS, SINGLE CYCLE), UNKNOWN
     Dates: start: 20120204, end: 20120204
  2. BOTULINUM TOXIN TYPE A [Suspect]
     Indication: OFF LABEL USE
     Dosage: 60 UNITS (60 UNITS, SINGLE CYCLE), UNKNOWN
     Dates: start: 20120204, end: 20120204

REACTIONS (9)
  - AUTOIMMUNE THYROIDITIS [None]
  - BASEDOW^S DISEASE [None]
  - NEUROMYOPATHY [None]
  - SENSATION OF HEAVINESS [None]
  - MYALGIA [None]
  - FATIGUE [None]
  - ELECTROMYOGRAM ABNORMAL [None]
  - BACTERIAL INFECTION [None]
  - VIRAL INFECTION [None]
